FAERS Safety Report 5328231-7 (Version None)
Quarter: 2007Q2

REPORT INFORMATION
  Report Type: 
  Country: None (occurrence: None)
  Receive Date: 20070514
  Receipt Date: 20070507
  Transmission Date: 20071010
  Serious: Yes (Life-Threatening, Other)
  Sender: FDA-Public Use
  Company Number: 07H-087-0312563-00

PATIENT
  Age: 70 Year
  Sex: Female

DRUGS (3)
  1. PROPOFOL [Suspect]
     Indication: INDUCTION AND MAINTENANCE OF ANAESTHESIA
     Dosage: EPIDURAL
     Route: 008
  2. FENTANYL [Suspect]
     Indication: INDUCTION AND MAINTENANCE OF ANAESTHESIA
     Dosage: EPIDURAL
     Route: 008
  3. 0.5% ROPIVACAINE (ROPIVACAINE) [Suspect]
     Indication: MAINTENANCE OF ANAESTHESIA
     Dosage: 3 ML; EPIDURAL
     Route: 008

REACTIONS (4)
  - ARTERIOSPASM CORONARY [None]
  - ATRIOVENTRICULAR BLOCK COMPLETE [None]
  - HYPOTENSION [None]
  - VENTRICULAR TACHYCARDIA [None]
